FAERS Safety Report 15505244 (Version 1)
Quarter: 2018Q4

REPORT INFORMATION
  Report Type: Spontaneous
  Country: DE (occurrence: DE)
  Receive Date: 20181016
  Receipt Date: 20181016
  Transmission Date: 20190205
  Serious: Yes (Hospitalization, Other)
  Sender: FDA-Public Use
  Company Number: DE-CIPLA LTD.-APC201006-000397

PATIENT

DRUGS (6)
  1. LAMOTRIGINE. [Interacting]
     Active Substance: LAMOTRIGINE
     Indication: PARTIAL SEIZURES
     Dosage: 350 MG, PER DAY (DAILY DOSE: 350 MG MILLIGRAM(S) EVERY DAY)
     Route: 065
  2. LAMOTRIGINE. [Suspect]
     Active Substance: LAMOTRIGINE
     Indication: IDIOPATHIC GENERALISED EPILEPSY
     Dosage: 200 MG, UNK
     Route: 065
  3. VALPROIC ACID. [Interacting]
     Active Substance: VALPROIC ACID
     Indication: PARTIAL SEIZURES
  4. LEVETIRACETAM. [Suspect]
     Active Substance: LEVETIRACETAM
     Indication: PARTIAL SEIZURES
  5. VALPROIC ACID. [Interacting]
     Active Substance: VALPROIC ACID
     Indication: IDIOPATHIC GENERALISED EPILEPSY
     Dosage: 1200 MG, PER DAY (DAILY DOSE: 1200 MG MILLIGRAM(S) EVERY DAY)
     Route: 065
  6. LEVETIRACETAM. [Suspect]
     Active Substance: LEVETIRACETAM
     Indication: IDIOPATHIC GENERALISED EPILEPSY
     Dosage: 2000 MG, UNK
     Route: 065

REACTIONS (5)
  - Psychotic disorder [Recovered/Resolved]
  - Anxiety [Recovered/Resolved]
  - Drug level increased [Recovered/Resolved]
  - Drug interaction [Unknown]
  - Hallucination, visual [Recovered/Resolved]
